FAERS Safety Report 14256080 (Version 1)
Quarter: 2017Q4

REPORT INFORMATION
  Report Type: Spontaneous
  Country: US (occurrence: US)
  Receive Date: 20171206
  Receipt Date: 20171206
  Transmission Date: 20180321
  Serious: Yes (Other)
  Sender: FDA-Public Use
  Company Number: US-SUPERNUS PHARMACEUTICALS, INC.-2017SUP00323

PATIENT
  Sex: Female

DRUGS (4)
  1. OXTELLAR XR [Suspect]
     Active Substance: OXCARBAZEPINE
     Dosage: 600 MG, UNK
     Dates: start: 2017, end: 2017
  2. OXTELLAR XR [Suspect]
     Active Substance: OXCARBAZEPINE
     Dosage: 450 MG, UNK
     Dates: start: 201705, end: 2017
  3. OXTELLAR XR [Suspect]
     Active Substance: OXCARBAZEPINE
     Dosage: 900 MG, UNK
     Dates: start: 2017
  4. SYNTHROID [Concomitant]
     Active Substance: LEVOTHYROXINE SODIUM

REACTIONS (6)
  - Drug ineffective [Unknown]
  - Fatigue [Unknown]
  - Generalised tonic-clonic seizure [Unknown]
  - Reading disorder [Unknown]
  - Speech disorder [Unknown]
  - Feeling abnormal [Unknown]

NARRATIVE: CASE EVENT DATE: 2017
